FAERS Safety Report 10180686 (Version 1)
Quarter: 2014Q2

REPORT INFORMATION
  Report Type: Spontaneous
  Country: US (occurrence: US)
  Receive Date: 20140519
  Receipt Date: 20140519
  Transmission Date: 20141212
  Serious: No
  Sender: FDA-Public Use
  Company Number: US-AMGEN INC.-USASP2014021600

PATIENT
  Age: 84 Year
  Sex: Female

DRUGS (10)
  1. PROLIA [Suspect]
     Indication: OSTEOPOROSIS POSTMENOPAUSAL
     Dosage: Q6MO
     Route: 065
     Dates: start: 2012
  2. TEGRETOL [Concomitant]
     Dosage: 1.5 TABLETS PER DAY
  3. DILTIAZEM HCL [Concomitant]
     Indication: BLOOD PRESSURE
     Dosage: 240 MG, DAILY
  4. COZAAR [Concomitant]
     Indication: BLOOD PRESSURE
  5. CITRACAL                           /00751520/ [Concomitant]
  6. VITAMIN D                          /00107901/ [Concomitant]
  7. OMEGA 3 FISH OIL                   /01334101/ [Concomitant]
  8. COQ10                              /00517201/ [Concomitant]
  9. VITAMIN C                          /00008001/ [Concomitant]
  10. VITAMIN B12                        /00056201/ [Concomitant]
     Dosage: 5000 MUG, UNK

REACTIONS (8)
  - Fall [Unknown]
  - Groin pain [Unknown]
  - Abdominal discomfort [Unknown]
  - Dizziness [Unknown]
  - Psychomotor hyperactivity [Unknown]
  - Insomnia [Unknown]
  - Musculoskeletal pain [Unknown]
  - Pain in extremity [Unknown]
